FAERS Safety Report 5485971-7 (Version None)
Quarter: 2007Q4

REPORT INFORMATION
  Report Type: 
  Country: None (occurrence: None)
  Receive Date: 20071012
  Receipt Date: 20071002
  Transmission Date: 20080405
  Serious: Yes (Hospitalization)
  Sender: FDA-Public Use
  Company Number: 2007SP003393

PATIENT
  Age: 49 Year
  Sex: Male
  Weight: 71 kg

DRUGS (2)
  1. ESZOPICLONE (ESZOPICLONE) [Suspect]
     Indication: DEPRESSION
     Dosage: 3 MG;HS;ORAL
     Route: 048
     Dates: start: 20070927, end: 20071001
  2. VENLAFAXINE (VENLAFAXINE) (75 MG) [Suspect]
     Indication: DEPRESSION
     Dosage: 75 MG;QD;ORAL
     Route: 048
     Dates: start: 20070927, end: 20071001

REACTIONS (4)
  - GENERAL PHYSICAL HEALTH DETERIORATION [None]
  - SEROTONIN SYNDROME [None]
  - SLEEP DISORDER [None]
  - VOMITING [None]
